FAERS Safety Report 19156113 (Version 9)
Quarter: 2022Q2

REPORT INFORMATION
  Report Type: Report from Study
  Country: DE (occurrence: DE)
  Receive Date: 20210419
  Receipt Date: 20220523
  Transmission Date: 20220721
  Serious: Yes (Life-Threatening, Hospitalization, Other)
  Sender: FDA-Public Use
  Company Number: DE-BRISTOL-MYERS SQUIBB COMPANY-BMS-2021-035392

PATIENT
  Age: 67 Year
  Sex: Male

DRUGS (5)
  1. NIVOLUMAB [Suspect]
     Active Substance: NIVOLUMAB
     Indication: Squamous cell carcinoma of head and neck
     Dosage: 240 MILLIGRAM, Q2WK
     Route: 042
     Dates: start: 20210128
  2. NIVOLUMAB [Suspect]
     Active Substance: NIVOLUMAB
     Dosage: 237.11 MILLIGRAM
     Route: 065
     Dates: start: 20210325
  3. NIVOLUMAB [Suspect]
     Active Substance: NIVOLUMAB
     Dosage: 239.17 MILLIGRAM
     Route: 065
     Dates: start: 20210408, end: 20210408
  4. IBUPROFEN [Concomitant]
     Active Substance: IBUPROFEN
     Indication: Neoplasm
     Dosage: MAX 1600MG , PRN
     Route: 065
  5. PANTOPRAZOLE [Concomitant]
     Active Substance: PANTOPRAZOLE
     Indication: Prophylaxis
     Dosage: 20 MILLIGRAM
     Route: 065

REACTIONS (10)
  - Acute kidney injury [Recovering/Resolving]
  - Acute myocardial infarction [Recovered/Resolved with Sequelae]
  - Pulmonary oedema [Recovered/Resolved with Sequelae]
  - Pneumonia [Recovering/Resolving]
  - Hyperthyroidism [Recovering/Resolving]
  - Malignant neoplasm progression [Unknown]
  - Alanine aminotransferase increased [Unknown]
  - Anaemia [Unknown]
  - Prescribed underdose [Unknown]
  - White blood cell count abnormal [Unknown]

NARRATIVE: CASE EVENT DATE: 20210128
